FAERS Safety Report 20667990 (Version 2)
Quarter: 2022Q2

REPORT INFORMATION
  Report Type: Spontaneous
  Country: JP (occurrence: JP)
  Receive Date: 20220404
  Receipt Date: 20220418
  Transmission Date: 20220721
  Serious: Yes (Death, Other)
  Sender: FDA-Public Use
  Company Number: JP-SUN PHARMACEUTICAL INDUSTRIES LTD-2022RR-331908

PATIENT
  Age: 66 Year
  Sex: Male
  Weight: 61 kg

DRUGS (5)
  1. GEMCITABINE [Suspect]
     Active Substance: GEMCITABINE
     Indication: Neoplasm malignant
     Dosage: GNP: GEMCITABINE + NAB-PACLITAXEL
     Route: 065
  2. GEMCITABINE [Suspect]
     Active Substance: GEMCITABINE
     Indication: Hypercalcaemia
     Dosage: DOSE REDUCED: 80%
     Route: 065
  3. GEMCITABINE [Suspect]
     Active Substance: GEMCITABINE
     Dosage: GEMCITABINE (GEM): MONOTHERAPY
     Route: 065
  4. PACLITAXEL [Suspect]
     Active Substance: PACLITAXEL
     Indication: Adenosquamous carcinoma of the cervix
     Dosage: GNP: GEMCITABINE + NAB-PACLITAXEL
     Route: 065
  5. PACLITAXEL [Suspect]
     Active Substance: PACLITAXEL
     Indication: Hypercalcaemia
     Dosage: DOSE REDUCED: 80%
     Route: 065

REACTIONS (5)
  - Death [Fatal]
  - Rash [Recovered/Resolved]
  - Neuropathy peripheral [Unknown]
  - Therapeutic product effect incomplete [Unknown]
  - Neoplasm progression [Unknown]
